FAERS Safety Report 7190686-3 (Version None)
Quarter: 2010Q4

REPORT INFORMATION
  Report Type: 
  Country: None (occurrence: None)
  Receive Date: 20101221
  Receipt Date: 20101221
  Transmission Date: 20110411
  Serious: No
  Sender: FDA-Public Use
  Company Number: None

PATIENT
  Age: 17 Year
  Sex: Male

DRUGS (1)
  1. GLUCAGON [Suspect]
     Indication: DIABETES MELLITUS
     Dosage: USE AS DIRECTED

REACTIONS (1)
  - SYRINGE ISSUE [None]
